FAERS Safety Report 15008537 (Version 2)
Quarter: 2018Q3

REPORT INFORMATION
  Report Type: Report from Study
  Country: US (occurrence: US)
  Receive Date: 20180613
  Receipt Date: 20180731
  Transmission Date: 20181010
  Serious: No
  Sender: FDA-Public Use
  Company Number: US-ACTELION-A-NJ2015-126481

PATIENT
  Age: 71 Year
  Sex: Male
  Weight: 79.82 kg

DRUGS (3)
  1. ADCIRCA [Concomitant]
     Active Substance: TADALAFIL
  2. OPSUMIT [Suspect]
     Active Substance: MACITENTAN
     Indication: PULMONARY ARTERIAL HYPERTENSION
     Dosage: 10 MG, QD
     Route: 048
     Dates: start: 20151021
  3. LIPITOR [Concomitant]
     Active Substance: ATORVASTATIN CALCIUM
     Dosage: 40 MG, UNK

REACTIONS (11)
  - Skin disorder [Unknown]
  - Blood bilirubin increased [Recovered/Resolved]
  - Dry mouth [Unknown]
  - Rhinorrhoea [Unknown]
  - Fall [Unknown]
  - Respiratory tract infection [Unknown]
  - Condition aggravated [Unknown]
  - Oedema [Unknown]
  - Hypoventilation [Unknown]
  - Type 2 diabetes mellitus [Not Recovered/Not Resolved]
  - Arteriosclerosis coronary artery [Not Recovered/Not Resolved]

NARRATIVE: CASE EVENT DATE: 20151113
